FAERS Safety Report 8470476-1 (Version None)
Quarter: 2012Q2

REPORT INFORMATION
  Report Type: 
  Country: None (occurrence: None)
  Receive Date: 20120323
  Receipt Date: 20111206
  Transmission Date: 20120825
  Serious: Yes (Other)
  Sender: FDA-Public Use
  Company Number: 163-21880-11101350

PATIENT
  Age: 70 Year
  Sex: Female

DRUGS (23)
  1. PREDNISONE [Concomitant]
  2. LORAZEPAM (LORAZEPAM)(0.5, TABLETS) [Concomitant]
  3. DEXAMETHASONE [Concomitant]
  4. MULTIVITAMINS (MULTIVITAMINS)(UNKNOWN) [Concomitant]
  5. REVLIMID [Suspect]
     Indication: MULTIPLE MYELOMA
     Dosage: SEE IMAGE
     Route: 048
     Dates: start: 20110101
  6. REVLIMID [Suspect]
     Indication: MULTIPLE MYELOMA
     Dosage: SEE IMAGE
     Route: 048
     Dates: start: 20101101
  7. REVLIMID [Suspect]
     Indication: MULTIPLE MYELOMA
     Dosage: SEE IMAGE
     Route: 048
     Dates: start: 20110401
  8. REVLIMID [Suspect]
     Indication: MULTIPLE MYELOMA
     Dosage: SEE IMAGE
     Route: 048
     Dates: start: 20110613
  9. REVLIMID [Suspect]
     Indication: MULTIPLE MYELOMA
     Dosage: SEE IMAGE
     Route: 048
     Dates: start: 20111010, end: 20111122
  10. VITAMIN D (ERGOCALCIFEROL)(UNKNOWN) [Concomitant]
  11. PRAVASTATIN [Concomitant]
  12. TRAMADOL (TRAMADOL)(TABLETS) [Concomitant]
  13. MELPHALAN HYDROCHLORIDE [Suspect]
     Indication: PRODUCT USED FOR UNKNOWN INDICATION
     Dosage: 16 MG, QD X 4 DAYS, 12 MG, X 4 DAYS
     Dates: start: 20110613, end: 20111122
  14. MELPHALAN HYDROCHLORIDE [Suspect]
     Indication: PRODUCT USED FOR UNKNOWN INDICATION
     Dosage: 16 MG, QD X 4 DAYS, 12 MG, X 4 DAYS
     Dates: start: 20111010, end: 20111122
  15. OMEPRAZOLE [Concomitant]
  16. SERTRALINE HYDROCHLORIDE [Concomitant]
  17. IRON (IRON)(325 MILLIGRAM, TABLETS) [Concomitant]
  18. ONDANSETRON HCL (ONDANSETRON HYDROCHLORIDE) [Concomitant]
  19. CALCIUM (CALCIUM)(UNKNOWN) [Concomitant]
  20. CELEBREX [Concomitant]
  21. ACYCLOVIR (ACICLOVIR)(400 MILLIGRAM, TABLETS) [Concomitant]
  22. ASPIRIN [Concomitant]
  23. METFORMIN HCL [Concomitant]

REACTIONS (1)
  - NEUTROPHIL COUNT DECREASED [None]
